FAERS Safety Report 5141975-5 (Version None)
Quarter: 2006Q4

REPORT INFORMATION
  Report Type: 
  Country: None (occurrence: None)
  Receive Date: 20061102
  Receipt Date: 20061025
  Transmission Date: 20070319
  Serious: Yes (Hospitalization)
  Sender: FDA-Public Use
  Company Number: FR-BOEHRINGER INGELHEIM PHARMACEUTICALS, INC.-2006-BP-12728YA

PATIENT
  Sex: Male

DRUGS (14)
  1. OMIX L.P. [Suspect]
     Route: 048
     Dates: end: 20060521
  2. CARDENSIEL (BISOPROLOL FUMARATE) [Suspect]
     Route: 048
     Dates: end: 20060521
  3. ZOLPIDEM TARTRATE [Suspect]
     Route: 048
     Dates: end: 20060521
  4. DIALGIREX (PARACETAMOL,DEXTROPROPOXYPHENE HYDROCHLORIDE) [Suspect]
  5. ATARAX [Suspect]
     Route: 048
     Dates: end: 20060521
  6. ALPRAZOLAM [Concomitant]
  7. FUROSEMIDE [Concomitant]
  8. ENALAPRIL MALEATE [Concomitant]
  9. FLUINDIONE [Concomitant]
  10. FENOFIBRATE [Concomitant]
  11. LOPERAMIDE OXYDE [Concomitant]
  12. ORNITHINE OXOGLURATE [Concomitant]
  13. ACETAMINOPHEN [Concomitant]
  14. ZOPICLONE [Concomitant]

REACTIONS (3)
  - FALL [None]
  - HYPOTENSION [None]
  - RENAL FAILURE [None]
